FAERS Safety Report 19867072 (Version 2)
Quarter: 2022Q1

REPORT INFORMATION
  Report Type: Report from Study
  Country: FR (occurrence: FR)
  Receive Date: 20210921
  Receipt Date: 20220215
  Transmission Date: 20220423
  Serious: Yes (Hospitalization, Other)
  Sender: FDA-Public Use
  Company Number: FR-TAKEDA-2021TUS057375

PATIENT
  Age: 34 Year
  Sex: Female

DRUGS (31)
  1. TEDUGLUTIDE [Suspect]
     Active Substance: TEDUGLUTIDE
     Indication: Short-bowel syndrome
     Dosage: 2.8 MILLIGRAM, QD
     Route: 065
     Dates: start: 20160705, end: 20200429
  2. TEDUGLUTIDE [Suspect]
     Active Substance: TEDUGLUTIDE
     Indication: Short-bowel syndrome
     Dosage: 2.8 MILLIGRAM, QD
     Route: 065
     Dates: start: 20160705, end: 20200429
  3. TEDUGLUTIDE [Suspect]
     Active Substance: TEDUGLUTIDE
     Indication: Short-bowel syndrome
     Dosage: 2.8 MILLIGRAM, QD
     Route: 065
     Dates: start: 20160705, end: 20200429
  4. TEDUGLUTIDE [Suspect]
     Active Substance: TEDUGLUTIDE
     Indication: Short-bowel syndrome
     Dosage: 2.8 MILLIGRAM, QD
     Route: 065
     Dates: start: 20160705, end: 20200429
  5. TEDUGLUTIDE [Suspect]
     Active Substance: TEDUGLUTIDE
     Dosage: 0.050 MILLIGRAM/KILOGRAM, QD
     Route: 065
     Dates: start: 20160706, end: 202004
  6. TEDUGLUTIDE [Suspect]
     Active Substance: TEDUGLUTIDE
     Dosage: 0.050 MILLIGRAM/KILOGRAM, QD
     Route: 065
     Dates: start: 20160706, end: 202004
  7. TEDUGLUTIDE [Suspect]
     Active Substance: TEDUGLUTIDE
     Dosage: 0.050 MILLIGRAM/KILOGRAM, QD
     Route: 065
     Dates: start: 20160706, end: 202004
  8. TEDUGLUTIDE [Suspect]
     Active Substance: TEDUGLUTIDE
     Dosage: 0.050 MILLIGRAM/KILOGRAM, QD
     Route: 065
     Dates: start: 20160706, end: 202004
  9. MAGNESIUM [Concomitant]
     Active Substance: MAGNESIUM
     Indication: Hypomagnesaemia
     Dosage: 1 DOSAGE FORM, BID
     Route: 048
     Dates: start: 20210610
  10. MAGNESIUM [Concomitant]
     Active Substance: MAGNESIUM
     Indication: Polyarthritis
  11. MAGNESIUM [Concomitant]
     Active Substance: MAGNESIUM
     Indication: Chondrocalcinosis
  12. CERNEVIT [Concomitant]
     Active Substance: VITAMINS
     Indication: Hypomagnesaemia
     Dosage: 500 MILLILITER, 2/WEEK IN 1AMP
     Route: 042
     Dates: start: 20210722
  13. CERNEVIT [Concomitant]
     Active Substance: VITAMINS
     Indication: Polyarthritis
     Dosage: 500 MILLILITER, 1/WEEK IN 1 AMP
     Route: 042
     Dates: start: 20210610, end: 20210721
  14. CERNEVIT [Concomitant]
     Active Substance: VITAMINS
     Indication: Chondrocalcinosis
     Dosage: 500 MILLILITER, 1/WEEK IN 1 AMP
     Route: 042
     Dates: start: 20210107, end: 20210609
  15. Spasmag [Concomitant]
     Indication: Hypomagnesaemia
     Dosage: 500 MILLILITER, 2/WEEK IN 5AMPS
     Route: 042
     Dates: start: 20210722
  16. Spasmag [Concomitant]
     Indication: Polyarthritis
     Dosage: 500 MILLILITER, 1/WEEK IN 5AMPS
     Route: 042
     Dates: start: 20210610, end: 20210721
  17. Spasmag [Concomitant]
     Indication: Chondrocalcinosis
     Dosage: 500 MILLILITER, 1/WEEK IN 2AMPS
     Route: 042
     Dates: start: 20210107, end: 20210609
  18. IRON\MINERALS\POTASSIUM IOD\SODIUM FLUORIDE\SODIUM MOLYBDATE\SODIUM SE [Concomitant]
     Active Substance: IRON\MINERALS\POTASSIUM IOD\SODIUM FLUORIDE\SODIUM MOLYBDATE\SODIUM SELENITE\ZINC
     Indication: Hypomagnesaemia
     Dosage: 500 MILLILITER, 2/WEEK IN 1AMP
     Route: 042
     Dates: start: 20210722
  19. IRON\MINERALS\POTASSIUM IOD\SODIUM FLUORIDE\SODIUM MOLYBDATE\SODIUM SE [Concomitant]
     Active Substance: IRON\MINERALS\POTASSIUM IOD\SODIUM FLUORIDE\SODIUM MOLYBDATE\SODIUM SELENITE\ZINC
     Indication: Polyarthritis
     Dosage: 500 MILLILITER, 1/WEEK IN 1AMP
     Route: 042
     Dates: start: 20210610, end: 20210621
  20. IRON\MINERALS\POTASSIUM IOD\SODIUM FLUORIDE\SODIUM MOLYBDATE\SODIUM SE [Concomitant]
     Active Substance: IRON\MINERALS\POTASSIUM IOD\SODIUM FLUORIDE\SODIUM MOLYBDATE\SODIUM SELENITE\ZINC
     Indication: Chondrocalcinosis
     Dosage: 500 MILLILITER, 1/WEEK IN 1AMP
     Route: 042
     Dates: start: 20210107, end: 20210609
  21. AMOXICILLIN [Concomitant]
     Active Substance: AMOXICILLIN
     Indication: Influenza like illness
     Dosage: 1 GRAM, TID
     Route: 048
     Dates: start: 20200924, end: 20200930
  22. AMOXICILLIN [Concomitant]
     Active Substance: AMOXICILLIN
     Indication: Lung disorder
  23. MAGNESIUM SULFATE [Concomitant]
     Active Substance: MAGNESIUM SULFATE
     Indication: Polyarthritis
     Dosage: 500 MILLILITER, 1/WEEK
     Route: 042
     Dates: start: 20210610, end: 20210721
  24. MAGNESIUM SULFATE [Concomitant]
     Active Substance: MAGNESIUM SULFATE
     Indication: Chondrocalcinosis
     Dosage: 500 MILLILITER, Q2WEEKS
     Route: 042
     Dates: start: 20210722
  25. MAGNESIUM SULFATE [Concomitant]
     Active Substance: MAGNESIUM SULFATE
     Indication: Hypomagnesaemia
  26. VITAMINS [Concomitant]
     Active Substance: VITAMINS
     Indication: Polyarthritis
     Dosage: 500 MILLILITER, 1/WEEK
     Route: 042
     Dates: start: 20210610, end: 20210721
  27. VITAMINS [Concomitant]
     Active Substance: VITAMINS
     Indication: Chondrocalcinosis
     Dosage: 500 MILLILITER, Q2WEEKS
     Route: 042
     Dates: start: 20210722
  28. VITAMINS [Concomitant]
     Active Substance: VITAMINS
     Indication: Hypomagnesaemia
  29. UNSPECIFIED INGREDIENT [Concomitant]
     Active Substance: UNSPECIFIED INGREDIENT
     Indication: Polyarthritis
     Dosage: 500 MILLILITER, 1/WEEK
     Route: 042
     Dates: start: 20210610, end: 20210721
  30. UNSPECIFIED INGREDIENT [Concomitant]
     Active Substance: UNSPECIFIED INGREDIENT
     Indication: Chondrocalcinosis
     Dosage: 500 MILLILITER, Q2WEEKS
     Route: 042
     Dates: start: 20210722
  31. UNSPECIFIED INGREDIENT [Concomitant]
     Active Substance: UNSPECIFIED INGREDIENT
     Indication: Hypomagnesaemia

REACTIONS (3)
  - Polyarthritis [Recovered/Resolved]
  - Pulmonary tuberculosis [Recovered/Resolved]
  - Pyrexia [Recovered/Resolved]

NARRATIVE: CASE EVENT DATE: 20201001
